FAERS Safety Report 8460839-2 (Version None)
Quarter: 2012Q2

REPORT INFORMATION
  Report Type: 
  Country: None (occurrence: None)
  Receive Date: 20120624
  Receipt Date: 20120614
  Transmission Date: 20120825
  Serious: Yes (Other)
  Sender: FDA-Public Use
  Company Number: FR-BRISTOL-MYERS SQUIBB COMPANY-16690968

PATIENT
  Age: 41 Year
  Sex: Male

DRUGS (2)
  1. TRUVADA [Suspect]
     Indication: HIV INFECTION
     Dosage: 1DF=200 MG/245 MG FILM-COATED TABLET
     Route: 048
     Dates: start: 20090401, end: 20120605
  2. REYATAZ [Suspect]
     Indication: HIV INFECTION
     Route: 048
     Dates: start: 20060901, end: 20120605

REACTIONS (2)
  - RENAL COLIC [None]
  - RENAL TUBULAR DISORDER [None]
